FAERS Safety Report 5586765-4 (Version None)
Quarter: 2008Q1

REPORT INFORMATION
  Report Type: 
  Country: None (occurrence: None)
  Receive Date: 20080110
  Receipt Date: 20080102
  Transmission Date: 20080703
  Serious: Yes (Hospitalization, Other)
  Sender: FDA-Public Use
  Company Number: GB-JNJFOC-20061206505

PATIENT
  Age: 78 Year
  Sex: Female
  Weight: 59 kg

DRUGS (13)
  1. REMICADE [Suspect]
     Route: 042
  2. REMICADE [Suspect]
     Route: 042
  3. REMICADE [Suspect]
     Indication: RHEUMATOID ARTHRITIS
     Route: 042
  4. ADCAL-D3 [Concomitant]
     Route: 048
  5. AMLODIPINE [Concomitant]
     Route: 048
  6. FOLIC ACID [Concomitant]
     Route: 050
  7. LISINOPRIL [Concomitant]
     Route: 048
  8. METOCLOPRAMIDE [Concomitant]
     Route: 048
  9. OMEPRAZOLE [Concomitant]
     Route: 048
  10. PARACETAMOL [Concomitant]
     Route: 048
  11. PREDNISOLONE [Concomitant]
     Route: 048
  12. METHOTREXATE [Concomitant]
     Indication: RHEUMATOID ARTHRITIS
  13. RESIDRONATE [Concomitant]

REACTIONS (2)
  - ATRIOVENTRICULAR BLOCK COMPLETE [None]
  - INFUSION RELATED REACTION [None]
